FAERS Safety Report 19129036 (Version 1)
Quarter: 2021Q2

REPORT INFORMATION
  Report Type: Spontaneous
  Country: US (occurrence: US)
  Receive Date: 20210413
  Receipt Date: 20210413
  Transmission Date: 20210717
  Serious: No
  Sender: FDA-Public Use
  Company Number: US-SA-2021SA113716

PATIENT
  Age: 55 Year
  Sex: Female

DRUGS (15)
  1. FLUTICASONE. [Concomitant]
     Active Substance: FLUTICASONE
  2. LORAZEPAM. [Concomitant]
     Active Substance: LORAZEPAM
  3. DEXAMETHASON [DEXAMETHASONE] [Concomitant]
     Active Substance: DEXAMETHASONE
  4. OMEPRAZOLE. [Concomitant]
     Active Substance: OMEPRAZOLE
  5. TRULANCE [Concomitant]
     Active Substance: PLECANATIDE
  6. LEVOCETIRIZINE [Concomitant]
     Active Substance: LEVOCETIRIZINE
  7. LISINOPRIL. [Concomitant]
     Active Substance: LISINOPRIL
  8. MONTELUKAST [Concomitant]
     Active Substance: MONTELUKAST SODIUM
  9. LEVALBUTEROL [LEVOSALBUTAMOL] [Concomitant]
     Active Substance: LEVALBUTEROL
  10. ENOXAPARIN [Concomitant]
     Active Substance: ENOXAPARIN
  11. AZITHROMYCIN ANHYDROUS. [Concomitant]
     Active Substance: AZITHROMYCIN ANHYDROUS
  12. XARELTO [Concomitant]
     Active Substance: RIVAROXABAN
  13. DUPIXENT [Suspect]
     Active Substance: DUPILUMAB
     Indication: ASTHMA
     Route: 058
     Dates: start: 20201105
  14. IVERMECTIN. [Concomitant]
     Active Substance: IVERMECTIN
  15. ARMOUR THYROID [Concomitant]
     Active Substance: THYROID, PORCINE

REACTIONS (2)
  - Product use issue [Unknown]
  - COVID-19 [Recovered/Resolved]

NARRATIVE: CASE EVENT DATE: 20201105
